FAERS Safety Report 8492566-X (Version None)
Quarter: 2012Q3

REPORT INFORMATION
  Report Type: 
  Country: None (occurrence: None)
  Receive Date: 20120706
  Receipt Date: 20120629
  Transmission Date: 20120928
  Serious: No
  Sender: FDA-Public Use
  Company Number: US-B.I. PHARMACEUTICALS,INC./RIDGEFIELD-2012-BP-14824BP

PATIENT
  Age: 81 Year
  Sex: Female

DRUGS (2)
  1. TRADJENTA [Suspect]
     Dosage: 5 MG
     Dates: start: 20120601, end: 20120601
  2. GLIPIZIDE [Concomitant]
     Indication: TYPE 2 DIABETES MELLITUS
     Dosage: 5 MG

REACTIONS (1)
  - PALPITATIONS [None]
